FAERS Safety Report 11640887 (Version 1)
Quarter: 2015Q4

REPORT INFORMATION
  Report Type: Spontaneous
  Country: US (occurrence: US)
  Receive Date: 20151019
  Receipt Date: 20151019
  Transmission Date: 20160304
  Serious: No
  Sender: FDA-Public Use
  Company Number: US-ELI_LILLY_AND_COMPANY-US201509008441

PATIENT
  Age: 56 Year
  Sex: Male

DRUGS (2)
  1. ADVIL [Concomitant]
     Active Substance: IBUPROFEN
  2. CIALIS [Suspect]
     Active Substance: TADALAFIL
     Indication: ERECTILE DYSFUNCTION
     Dosage: 5 MG, QD
     Route: 065
     Dates: start: 20150921

REACTIONS (4)
  - Inappropriate schedule of drug administration [Unknown]
  - Eye pain [Unknown]
  - Dry eye [Unknown]
  - Asthenopia [Unknown]

NARRATIVE: CASE EVENT DATE: 20150921
